FAERS Safety Report 6088410-0 (Version None)
Quarter: 2009Q1

REPORT INFORMATION
  Report Type: 
  Country: None (occurrence: None)
  Receive Date: 20090224
  Receipt Date: 20090211
  Transmission Date: 20090719
  Serious: Yes (Other)
  Sender: FDA-Public Use
  Company Number: US-PFIZER INC-2009156003

PATIENT
  Sex: Female
  Weight: 80.285 kg

DRUGS (21)
  1. CHANTIX [Suspect]
     Indication: SMOKING CESSATION THERAPY
     Dosage: 1 MG, 2X/DAY
     Route: 048
     Dates: start: 20081201, end: 20090120
  2. CYMBALTA [Concomitant]
     Dosage: UNK
  3. BENICAR [Concomitant]
     Dosage: UNK
  4. COZAAR [Concomitant]
     Dosage: UNK
  5. PREVACID [Concomitant]
     Dosage: UNK
  6. PREMARIN [Concomitant]
     Dosage: UNK
  7. SINGULAIR [Concomitant]
     Dosage: UNK
  8. LIPITOR [Concomitant]
     Dosage: UNK
  9. ASPIRIN [Concomitant]
     Dosage: UNK
  10. VICODIN [Concomitant]
     Dosage: UNK
  11. LUNESTA [Concomitant]
     Dosage: UNK
  12. TRAZODONE [Concomitant]
     Dosage: UNK
  13. VITAMIN B-12 [Concomitant]
     Dosage: UNK
     Route: 051
  14. MULTI-VITAMINS [Concomitant]
     Dosage: UNK
  15. FERROUS SULFATE TAB [Concomitant]
     Dosage: UNK
  16. DOCUSATE SODIUM [Concomitant]
     Dosage: UNK
  17. CALCIUM CARBONATE [Concomitant]
     Dosage: UNK
  18. ASCORBIC ACID [Concomitant]
     Dosage: UNK
  19. FOLIC ACID [Concomitant]
     Dosage: UNK
  20. LAXATIVES [Concomitant]
     Dosage: UNK
  21. XANAX [Concomitant]
     Dosage: UNK

REACTIONS (7)
  - ABNORMAL DREAMS [None]
  - DEPRESSION [None]
  - FEELING ABNORMAL [None]
  - HEADACHE [None]
  - HYPERHIDROSIS [None]
  - IRRITABILITY [None]
  - OEDEMA PERIPHERAL [None]
